FAERS Safety Report 23146926 (Version 2)
Quarter: 2023Q4

REPORT INFORMATION
  Report Type: Report from Study
  Country: US (occurrence: US)
  Receive Date: 20231106
  Receipt Date: 20231108
  Transmission Date: 20240110
  Serious: No
  Sender: FDA-Public Use
  Company Number: US-002147023-NVSC2023US235326

PATIENT
  Age: 6 Year
  Sex: Male
  Weight: 22 kg

DRUGS (3)
  1. ILARIS [Suspect]
     Active Substance: CANAKINUMAB
     Indication: Juvenile idiopathic arthritis
     Dosage: 85 MG, QMO
     Route: 058
     Dates: start: 202304
  2. ILARIS [Suspect]
     Active Substance: CANAKINUMAB
     Dosage: 85 MG, Q4W
     Route: 058
  3. ILARIS [Suspect]
     Active Substance: CANAKINUMAB
     Dosage: 85 MG, Q5W
     Route: 058

REACTIONS (4)
  - Upper respiratory tract infection [Unknown]
  - Vomiting [Unknown]
  - Papule [Unknown]
  - Gastrointestinal disorder [Unknown]

NARRATIVE: CASE EVENT DATE: 20230925
